FAERS Safety Report 11567577 (Version 4)
Quarter: 2016Q1

REPORT INFORMATION
  Report Type: Spontaneous
  Country: US (occurrence: US)
  Receive Date: 20150929
  Receipt Date: 20160311
  Transmission Date: 20160525
  Serious: Yes (Disabling, Other)
  Sender: FDA-Public Use
  Company Number: US-009507513-1509USA013050

PATIENT
  Age: 27 Year
  Sex: Female
  Weight: 132.88 kg

DRUGS (5)
  1. LIDOCAINE. [Suspect]
     Active Substance: LIDOCAINE
     Dosage: UNK
  2. FIORICET [Concomitant]
     Active Substance: ACETAMINOPHEN\BUTALBITAL\CAFFEINE
     Dosage: UNK
  3. NEXPLANON [Suspect]
     Active Substance: ETONOGESTREL
     Indication: CONTRACEPTION
     Dosage: UNK
     Route: 059
     Dates: start: 20150813, end: 20150903
  4. IMITREX [Concomitant]
     Active Substance: SUMATRIPTAN SUCCINATE
     Dosage: UNK
  5. IBUPROFEN. [Concomitant]
     Active Substance: IBUPROFEN
     Dosage: UNK

REACTIONS (12)
  - Skin irritation [Recovered/Resolved]
  - Implant site vesicles [Recovered/Resolved]
  - Erythema [Recovered/Resolved]
  - Implant site pain [Recovered/Resolved]
  - Skin disorder [Recovered/Resolved]
  - Scar [Not Recovered/Not Resolved]
  - Implant site infection [Recovered/Resolved]
  - Skin discolouration [Recovered/Resolved]
  - Skin disorder [Recovered/Resolved]
  - Implant site ischaemia [Recovered/Resolved]
  - Skin reaction [Recovered/Resolved]
  - Implant site rash [Recovered/Resolved]

NARRATIVE: CASE EVENT DATE: 2015
